FAERS Safety Report 7617780-4 (Version None)
Quarter: 2011Q3

REPORT INFORMATION
  Report Type: 
  Country: None (occurrence: None)
  Receive Date: 20110718
  Receipt Date: 20110708
  Transmission Date: 20111222
  Serious: Yes (Hospitalization)
  Sender: FDA-Public Use
  Company Number: NO-TEVA-289702ISR

PATIENT
  Sex: Female

DRUGS (6)
  1. CLARITHROMYCIN [Suspect]
     Indication: HELICOBACTER INFECTION
     Dosage: 1000 MILLIGRAM;
     Route: 048
     Dates: start: 20110501, end: 20110529
  2. METRONIDAZOLE [Suspect]
     Indication: HELICOBACTER INFECTION
     Dosage: 1000 MILLIGRAM;
     Route: 048
     Dates: start: 20110501, end: 20110529
  3. LEVOTHYROXINE SODIUM [Concomitant]
     Indication: HYPOTHYROIDISM
     Dosage: 100 MICROGRAM;
     Route: 048
  4. LANSOPRAZOLE [Concomitant]
     Indication: HELICOBACTER INFECTION
     Dosage: 30 MILLIGRAM;
     Route: 048
     Dates: start: 20110501, end: 20110527
  5. XALATAN [Concomitant]
     Indication: GLAUCOMA
     Dosage: 1 GTT;
     Route: 047
  6. COSOPT [Concomitant]
     Indication: GLAUCOMA
     Dosage: 2 GTT;
     Route: 047

REACTIONS (1)
  - DELUSION [None]
